FAERS Safety Report 7296676-4 (Version None)
Quarter: 2011Q1

REPORT INFORMATION
  Report Type: 
  Country: None (occurrence: None)
  Receive Date: 20110216
  Receipt Date: 20110124
  Transmission Date: 20110831
  Serious: No
  Sender: FDA-Public Use
  Company Number: US-B.I. PHARMACEUTICALS,INC./RIDGEFIELD-2011-BP-02513BP

PATIENT
  Sex: Female

DRUGS (10)
  1. PRADAXA [Suspect]
     Indication: ATRIAL FIBRILLATION
     Dosage: 300 MG
     Route: 048
     Dates: start: 20110120, end: 20110120
  2. NORVASC [Concomitant]
     Indication: HYPERTENSION
     Dosage: 10 MG
     Route: 048
  3. MULTAQ [Concomitant]
     Indication: ATRIAL FIBRILLATION
     Dosage: 400 MG
     Route: 048
  4. PRADAXA [Suspect]
     Dosage: 300 MG
     Route: 048
     Dates: start: 20110122, end: 20110122
  5. METOPROLOL [Concomitant]
     Indication: ATRIAL FIBRILLATION
     Dosage: 25 MG
     Route: 048
  6. HYDROCHLOROTHIAZIDE [Concomitant]
     Indication: FLUID RETENTION
     Dosage: 12.5 MG
     Route: 048
  7. BONIVA [Concomitant]
     Indication: OSTEOPOROSIS
     Route: 048
  8. AMBIEN [Concomitant]
     Indication: INSOMNIA
     Route: 048
  9. FESOTERODINE [Concomitant]
     Indication: BLADDER DISORDER
     Route: 048
  10. COUMADIN [Concomitant]
     Indication: PROPHYLAXIS
     Dosage: 3 MG
     Route: 048

REACTIONS (2)
  - NAUSEA [None]
  - ASTHENIA [None]
